FAERS Safety Report 12724183 (Version 1)
Quarter: 2016Q3

REPORT INFORMATION
  Report Type: Spontaneous
  Country: DE (occurrence: DE)
  Receive Date: 20160908
  Receipt Date: 20160908
  Transmission Date: 20161109
  Serious: Yes (Other)
  Sender: FDA-Public Use
  Company Number: ALCN2016DE005978

PATIENT
  Sex: Female

DRUGS (2)
  1. FOSTER [Concomitant]
     Active Substance: BECLOMETHASONE\FORMOTEROL
     Indication: ASTHMA
     Dosage: UNK
     Route: 065
  2. VITALUX PLUS [Suspect]
     Active Substance: VITAMINS
     Indication: AGE-RELATED MACULAR DEGENERATION
     Dosage: UNK
     Route: 048

REACTIONS (1)
  - Cataract [Not Recovered/Not Resolved]
